FAERS Safety Report 9032084 (Version 3)
Quarter: 2013Q2

REPORT INFORMATION
  Report Type: Spontaneous
  Country: US (occurrence: US)
  Receive Date: 20130122
  Receipt Date: 20130528
  Transmission Date: 20140414
  Serious: Yes (Hospitalization)
  Sender: FDA-Public Use
  Company Number: US-BAYER-2013-008178

PATIENT
  Age: 34 Year
  Sex: Female
  Weight: 62.13 kg

DRUGS (10)
  1. YAZ [Suspect]
     Dosage: UNK
     Dates: start: 20070312, end: 201001
  2. SINGULAIR [Concomitant]
     Dosage: 10 MG, UNK
  3. LEVOTHYROXINE [Concomitant]
     Dosage: 88 MCG
  4. PROAIR HFA [Concomitant]
     Dosage: 90 MCG
     Route: 045
  5. FLOVENT [Concomitant]
     Dosage: 44 MCG
     Route: 045
  6. AZITHROMYCIN [Concomitant]
     Dosage: 250 MG, UNK
  7. PREDNISONE [Concomitant]
     Dosage: 20 MG, UNK
  8. RELPAX [Concomitant]
     Dosage: 20 MG, UNK
  9. PROMETHAZINE [Concomitant]
     Dosage: 25 MG, UNK
  10. COUMADIN [Concomitant]
     Indication: PULMONARY EMBOLISM

REACTIONS (6)
  - Pulmonary embolism [Recovered/Resolved]
  - Injury [Recovered/Resolved]
  - Pain [Recovered/Resolved]
  - Depression [None]
  - Mood swings [None]
  - Emotional distress [None]
